FAERS Safety Report 7910487-5 (Version None)
Quarter: 2011Q4

REPORT INFORMATION
  Report Type: 
  Country: None (occurrence: None)
  Receive Date: 20111111
  Receipt Date: 20111103
  Transmission Date: 20120403
  Serious: Yes (Other)
  Sender: FDA-Public Use
  Company Number: PHFR2011GB05132

PATIENT
  Sex: Male

DRUGS (2)
  1. ZOPICLONE [Concomitant]
     Indication: INSOMNIA
     Dates: start: 20110803, end: 20110810
  2. CLOZARIL [Suspect]
     Indication: SCHIZOPHRENIA
     Dosage: 175 MG, DAILY
     Route: 048
     Dates: start: 20110802

REACTIONS (2)
  - EOSINOPHIL COUNT INCREASED [None]
  - GROIN INFECTION [None]
